FAERS Safety Report 4976517-8 (Version None)
Quarter: 2006Q2

REPORT INFORMATION
  Report Type: 
  Country: None (occurrence: None)
  Receive Date: 20060418
  Receipt Date: 20060418
  Transmission Date: 20061013
  Serious: Yes (Life-Threatening, Hospitalization)
  Sender: FDA-Public Use
  Company Number: None

PATIENT
  Age: 47 Year
  Sex: Male

DRUGS (6)
  1. CLOZAPINE [Suspect]
     Indication: SCHIZOAFFECTIVE DISORDER
     Dosage: 150MG TWICE A DAY PO
     Route: 048
     Dates: start: 20060104, end: 20060301
  2. FAZACLO 25MG ALAMO [Suspect]
  3. FLUOXETINE [Concomitant]
  4. NISOLDIPINE [Concomitant]
  5. ALUMINUM/MAG/HYDROXIDE -GENERIC MYLANTA- [Concomitant]
  6. ACETAMINOPHEN [Concomitant]

REACTIONS (3)
  - NEUTROPHIL COUNT DECREASED [None]
  - PYREXIA [None]
  - WHITE BLOOD CELL COUNT DECREASED [None]
